FAERS Safety Report 6922946-2 (Version None)
Quarter: 2010Q3

REPORT INFORMATION
  Report Type: 
  Country: None (occurrence: None)
  Receive Date: 20100813
  Receipt Date: 20100811
  Transmission Date: 20110219
  Serious: Yes (Hospitalization, Disabling)
  Sender: FDA-Public Use
  Company Number: PHHO2010IT11796

PATIENT
  Sex: Male
  Weight: 75 kg

DRUGS (2)
  1. AFINITOR [Suspect]
     Indication: NEUROENDOCRINE TUMOUR
     Dosage: 10MG/DAY
     Route: 048
     Dates: start: 20100317, end: 20100802
  2. PLAUNAZIDE [Concomitant]

REACTIONS (4)
  - HEADACHE [None]
  - NAUSEA [None]
  - PRESYNCOPE [None]
  - URINARY INCONTINENCE [None]
